FAERS Safety Report 20043241 (Version 1)
Quarter: 2021Q4

REPORT INFORMATION
  Report Type: Report from Study
  Country: US (occurrence: US)
  Receive Date: 20211108
  Receipt Date: 20211108
  Transmission Date: 20220304
  Serious: No
  Sender: FDA-Public Use
  Company Number: US-NOVARTISTESTPH-PHHY2018US013364

PATIENT
  Age: 55 Year
  Sex: Female

DRUGS (2)
  1. JAKAFI [Suspect]
     Active Substance: RUXOLITINIB
     Indication: Myelofibrosis
     Dosage: 20 MG, BID
     Route: 048
     Dates: start: 20180417
  2. PREDNISONE [Suspect]
     Active Substance: PREDNISONE
     Indication: Product used for unknown indication
     Dosage: UNK
     Route: 065

REACTIONS (21)
  - Platelet count increased [Recovered/Resolved]
  - White blood cell count abnormal [Recovered/Resolved]
  - Platelet count abnormal [Recovered/Resolved]
  - White blood cell count decreased [Recovered/Resolved]
  - Product dose omission issue [Unknown]
  - Furuncle [Recovering/Resolving]
  - Body temperature increased [Recovering/Resolving]
  - Scab [Recovering/Resolving]
  - Sinus congestion [Recovering/Resolving]
  - Blood cholesterol increased [Unknown]
  - Muscle spasms [Unknown]
  - Contusion [Unknown]
  - General physical health deterioration [Unknown]
  - Ear disorder [Recovered/Resolved]
  - Influenza [Unknown]
  - Respiratory symptom [Unknown]
  - Sinus disorder [Unknown]
  - Cough [Recovered/Resolved]
  - Upper respiratory tract infection [Unknown]
  - Ear infection [Unknown]
  - Product availability issue [Unknown]

NARRATIVE: CASE EVENT DATE: 20180401
